FAERS Safety Report 10206098 (Version 2)
Quarter: 2014Q2

REPORT INFORMATION
  Report Type: Spontaneous
  Country: US (occurrence: US)
  Receive Date: 20140530
  Receipt Date: 20140530
  Transmission Date: 20141212
  Serious: No
  Sender: FDA-Public Use
  Company Number: US-PFIZER INC-2014120248

PATIENT
  Age: 38 Year
  Sex: Female
  Weight: 79.82 kg

DRUGS (5)
  1. ENBREL [Suspect]
     Indication: RHEUMATOID ARTHRITIS
     Dosage: 50 MG, WEEKLY
     Route: 058
     Dates: start: 201403, end: 20140505
  2. MEDROL [Suspect]
     Indication: RHEUMATOID ARTHRITIS
     Dosage: 4 MG, ONCE DAILY
     Route: 048
     Dates: start: 20140303
  3. MOBIC [Suspect]
     Indication: RHEUMATOID ARTHRITIS
     Dosage: 7.5 MG, QD TO BID
     Route: 048
     Dates: start: 20140303
  4. PRILOSEC [Concomitant]
     Dosage: 2 MG, ONCE DAILY
     Route: 048
     Dates: start: 20140303
  5. ALPRAZOLAM [Concomitant]
     Dosage: 0.5 MG, TWICE DAILY
     Route: 048

REACTIONS (3)
  - Peripheral swelling [Unknown]
  - Muscle tightness [Not Recovered/Not Resolved]
  - Dyspnoea [Unknown]
